FAERS Safety Report 4370499-8 (Version None)
Quarter: 2004Q2

REPORT INFORMATION
  Report Type: 
  Country: None (occurrence: None)
  Receive Date: 20040527
  Receipt Date: 20040510
  Transmission Date: 20050107
  Serious: Yes (Other)
  Sender: FDA-Public Use
  Company Number: EWC040539214

PATIENT
  Age: 60 Year
  Sex: Male
  Weight: 69 kg

DRUGS (6)
  1. PERMAX [Suspect]
     Indication: PARKINSON'S DISEASE
     Dosage: 1 MG/3 DAY
     Dates: start: 20000101, end: 20031203
  2. SYMMETREL [Concomitant]
  3. MADOPAR DR [Concomitant]
  4. OXAZEPAM [Concomitant]
  5. DETRUSITOL (TOLTERODINE L-TARTRATE) [Concomitant]
  6. CALPEROS (CALCIUM CARBONATE) [Concomitant]

REACTIONS (2)
  - GAMBLING [None]
  - PERSONALITY CHANGE [None]
